FAERS Safety Report 6846927-2 (Version None)
Quarter: 2010Q3

REPORT INFORMATION
  Report Type: 
  Country: None (occurrence: None)
  Receive Date: 20100715
  Receipt Date: 20070928
  Transmission Date: 20110219
  Serious: No
  Sender: FDA-Public Use
  Company Number: US-PFIZER INC-2007080047

PATIENT
  Sex: Female
  Weight: 76.7 kg

DRUGS (9)
  1. CHANTIX [Suspect]
     Indication: SMOKING CESSATION THERAPY
     Route: 048
     Dates: start: 20070301
  2. ACCUPRIL [Concomitant]
  3. THEOCHRON [Concomitant]
  4. PREVACID [Concomitant]
  5. CRESTOR [Concomitant]
  6. ZYRTEC [Concomitant]
  7. TRANXENE [Concomitant]
  8. LASIX [Concomitant]
  9. ALBUTEROL [Concomitant]
     Route: 055

REACTIONS (1)
  - DRUG INEFFECTIVE [None]
